FAERS Safety Report 10267939 (Version 1)
Quarter: 2014Q2

REPORT INFORMATION
  Report Type: Spontaneous
  Country: US (occurrence: US)
  Receive Date: 20140630
  Receipt Date: 20140630
  Transmission Date: 20141212
  Serious: Yes (Other)
  Sender: FDA-Public Use
  Company Number: US-SA-2014SA084176

PATIENT
  Age: 61 Year
  Sex: Male

DRUGS (2)
  1. KYNAMRO [Suspect]
     Indication: TYPE IIA HYPERLIPIDAEMIA
     Route: 065
     Dates: start: 20140620
  2. XANAX [Concomitant]

REACTIONS (3)
  - Pallor [Unknown]
  - Hyperhidrosis [Unknown]
  - Eye movement disorder [Unknown]
